FAERS Safety Report 11415302 (Version 1)
Quarter: 2015Q3

REPORT INFORMATION
  Report Type: Spontaneous
  Country: US (occurrence: None)
  Receive Date: 20150824
  Receipt Date: 20150824
  Transmission Date: 20151125
  Serious: No
  Sender: FDA-Public Use
  Company Number: None

PATIENT
  Age: 27 Year
  Sex: Female
  Weight: 81.65 kg

DRUGS (1)
  1. XULANE [Suspect]
     Active Substance: ETHINYL ESTRADIOL\NORELGESTROMIN
     Indication: CONTRACEPTION
     Dosage: 1 PATCH WEEKLY APPLIED AS MEDICATED PATCH TO SKIN
     Route: 061
     Dates: start: 20140101, end: 20150121

REACTIONS (8)
  - Application site reaction [None]
  - Skin odour abnormal [None]
  - Chemical burn of skin [None]
  - Application site vesicles [None]
  - Application site pain [None]
  - Application site discolouration [None]
  - Application site rash [None]
  - Application site exfoliation [None]

NARRATIVE: CASE EVENT DATE: 20150821
